FAERS Safety Report 23445960 (Version 1)
Quarter: 2024Q1

REPORT INFORMATION
  Report Type: Report from Study
  Country: CA (occurrence: CA)
  Receive Date: 20240126
  Receipt Date: 20240126
  Transmission Date: 20240410
  Serious: Yes (Other)
  Sender: FDA-Public Use
  Company Number: CA-TAKEDA-2022TUS103896

PATIENT
  Sex: Female

DRUGS (6)
  1. VEDOLIZUMAB [Suspect]
     Active Substance: VEDOLIZUMAB
     Indication: Crohn^s disease
     Dosage: 300 MILLIGRAM
     Route: 042
     Dates: start: 20170629
  2. VEDOLIZUMAB [Suspect]
     Active Substance: VEDOLIZUMAB
     Dosage: 300 MILLIGRAM
     Route: 042
  3. DIMENHYDRINATE [Concomitant]
     Active Substance: DIMENHYDRINATE
     Dosage: UNK
  4. EFFEXOR [Concomitant]
     Active Substance: VENLAFAXINE HYDROCHLORIDE
     Dosage: 150 MILLIGRAM, QD
  5. ENTOCORT [Concomitant]
     Active Substance: BUDESONIDE
     Dosage: 9 MILLIGRAM
  6. IRON [Concomitant]
     Active Substance: IRON
     Dosage: UNK

REACTIONS (11)
  - Asthenia [Recovering/Resolving]
  - Vomiting [Recovering/Resolving]
  - Constipation [Recovering/Resolving]
  - Malaise [Unknown]
  - Peripheral swelling [Unknown]
  - Depression [Unknown]
  - Pallor [Unknown]
  - Chills [Unknown]
  - Arthralgia [Unknown]
  - Headache [Unknown]
  - Nausea [Unknown]
